FAERS Safety Report 8257774-1 (Version None)
Quarter: 2012Q2

REPORT INFORMATION
  Report Type: 
  Country: None (occurrence: None)
  Receive Date: 20120404
  Receipt Date: 20120327
  Transmission Date: 20120825
  Serious: Yes (Hospitalization)
  Sender: FDA-Public Use
  Company Number: US-BIOGENIDEC-2011BI040778

PATIENT
  Age: 56 Year
  Sex: Female

DRUGS (2)
  1. SYNTHROID [Concomitant]
     Indication: PRODUCT USED FOR UNKNOWN INDICATION
  2. TYSABRI [Suspect]
     Indication: MULTIPLE SCLEROSIS
     Route: 042
     Dates: start: 20090304, end: 20091209

REACTIONS (5)
  - HYPOTENSION [None]
  - DEPRESSION [None]
  - PNEUMONIA [None]
  - MOBILITY DECREASED [None]
  - KIDNEY INFECTION [None]
